FAERS Safety Report 6037939-X (Version None)
Quarter: 2009Q1

REPORT INFORMATION
  Report Type: 
  Country: None (occurrence: None)
  Receive Date: 20090113
  Receipt Date: 20090113
  Transmission Date: 20090719
  Serious: Yes (Life-Threatening, Disabling, Other)
  Sender: FDA-Public Use
  Company Number: None

PATIENT
  Age: 44 Year
  Sex: Female
  Weight: 90.7194 kg

DRUGS (2)
  1. BACLOFEN [Suspect]
     Indication: MUSCLE SPASTICITY
     Dosage: 421.3 UG DAILY IT
     Route: 037
     Dates: start: 20080219
  2. BACLOFEN [Suspect]
     Indication: MUSCLE SPASTICITY
     Dosage: 421.3 UG DAILY IT
     Route: 037
     Dates: start: 20090112

REACTIONS (5)
  - DISCOMFORT [None]
  - FRUSTRATION [None]
  - MEDICAL DEVICE COMPLICATION [None]
  - OVERDOSE [None]
  - PAIN [None]
